FAERS Safety Report 8582887 (Version 4)
Quarter: 2012Q4

REPORT INFORMATION
  Report Type: 
  Country: PH (occurrence: PH)
  Receive Date: 20120529
  Receipt Date: 20121030
  Transmission Date: 20130627
  Serious: Yes (Death, Life-Threatening, Hospitalization)
  Sender: FDA-Public Use
  Company Number: PH-GENZYME-CERZ-1002509

PATIENT
  Age: 6 None
  Sex: Female
  Weight: 15 kg

DRUGS (1)
  1. CEREZYME [Suspect]
     Indication: GAUCHER^S DISEASE
     Dosage: 30 U/kg, UNK
     Route: 042
     Dates: start: 20100315, end: 20120428

REACTIONS (4)
  - Disease progression [Fatal]
  - Apnoea [Fatal]
  - Convulsion [Fatal]
  - Pneumonia aspiration [Recovered/Resolved]
